FAERS Safety Report 24932456 (Version 1)
Quarter: 2025Q1

REPORT INFORMATION
  Report Type: Spontaneous
  Country: RO (occurrence: RO)
  Receive Date: 20250205
  Receipt Date: 20250205
  Transmission Date: 20250409
  Serious: No
  Sender: EXELIXIS
  Company Number: RO-IPSEN Group, Research and Development-2024-16369

PATIENT
  Sex: Male

DRUGS (1)
  1. CABOMETYX [Suspect]
     Active Substance: CABOZANTINIB S-MALATE
     Indication: Renal cell carcinoma
     Route: 065
     Dates: start: 20240809

REACTIONS (3)
  - Burning sensation mucosal [Unknown]
  - Dysphonia [Unknown]
  - Rash [Unknown]

NARRATIVE: CASE EVENT DATE: 20240801
